FAERS Safety Report 8048743-5 (Version None)
Quarter: 2011Q4

REPORT INFORMATION
  Report Type: 
  Country: None (occurrence: None)
  Receive Date: 20111209
  Receipt Date: 20111006
  Transmission Date: 20120403
  Serious: No
  Sender: FDA-Public Use
  Company Number: 2011SP047471

PATIENT
  Age: 58 Year
  Sex: Male

DRUGS (15)
  1. FISH OIL [Concomitant]
  2. LORAZEPAM [Concomitant]
  3. FLAX SEED OIL [Concomitant]
  4. VITAMIN D [Concomitant]
  5. VITAMIN B COMPLEX CAP [Concomitant]
  6. MIRTAZAPINE [Concomitant]
  7. VICTRELIS [Suspect]
     Indication: HEPATITIS C
     Dosage: 400 MG;Q8H;PO, 200 MG;TID;PO
     Route: 048
     Dates: start: 20111004
  8. PRILOSEC [Concomitant]
  9. PEGASYS [Suspect]
     Indication: HEPATITIS C
     Dosage: 180 MCG;QM
  10. RIBAVIRIN [Suspect]
     Dosage: 200 MG
  11. CALCIUM MAGNESIUM [Concomitant]
  12. CAL MAG [Concomitant]
  13. OMEPRAZOLE [Concomitant]
  14. LEXAPRO [Concomitant]
  15. LISINOPRIL [Concomitant]

REACTIONS (5)
  - NAUSEA [None]
  - ANAEMIA [None]
  - UNDERDOSE [None]
  - FATIGUE [None]
  - DRY MOUTH [None]
